FAERS Safety Report 4760344-0 (Version None)
Quarter: 2005Q3

REPORT INFORMATION
  Report Type: 
  Country: None (occurrence: None)
  Receive Date: 20050902
  Receipt Date: 20050824
  Transmission Date: 20060218
  Serious: Yes (Other)
  Sender: FDA-Public Use
  Company Number: US-GLAXOSMITHKLINE-A0571563A

PATIENT
  Sex: Female

DRUGS (2)
  1. TUMS E-X TABLETS, SUGAR FREE ORANGE [Suspect]
     Indication: DRUG USE FOR UNKNOWN INDICATION
     Route: 048
  2. COUMADIN [Concomitant]

REACTIONS (1)
  - COAGULOPATHY [None]
